FAERS Safety Report 17741393 (Version 1)
Quarter: 2020Q2

REPORT INFORMATION
  Report Type: Report from Study
  Country: None (occurrence: DE)
  Receive Date: 20200504
  Receipt Date: 20200504
  Transmission Date: 20200714
  Serious: Yes (Hospitalization)
  Sender: FDA-Public Use
  Company Number: DE-ABBVIE-20K-062-3386762-00

PATIENT
  Sex: Female

DRUGS (1)
  1. HUMIRA [Suspect]
     Active Substance: ADALIMUMAB
     Indication: ANKYLOSING SPONDYLITIS
     Route: 058
     Dates: start: 2014, end: 201907

REACTIONS (8)
  - Rehabilitation therapy [Unknown]
  - Hypersensitivity [Recovered/Resolved]
  - General physical health deterioration [Recovering/Resolving]
  - Bronchitis [Recovered/Resolved with Sequelae]
  - Asthma [Not Recovered/Not Resolved]
  - Listless [Recovering/Resolving]
  - Emotional distress [Recovering/Resolving]
  - Fatigue [Recovering/Resolving]

NARRATIVE: CASE EVENT DATE: 2014
